FAERS Safety Report 16491826 (Version 1)
Quarter: 2019Q2

REPORT INFORMATION
  Report Type: Spontaneous
  Country: US (occurrence: US)
  Receive Date: 20190518
  Receipt Date: 20190518
  Transmission Date: 20190711
  Serious: No
  Sender: FDA-Public Use
  Company Number: None

PATIENT
  Age: 63 Year
  Sex: Male
  Weight: 111 kg

DRUGS (2)
  1. HALOPERIDOL. [Suspect]
     Active Substance: HALOPERIDOL
     Indication: AGITATION
     Route: 030
     Dates: start: 20190429, end: 20190429
  2. LORAZEPAM. [Suspect]
     Active Substance: LORAZEPAM
     Indication: AGITATION
     Route: 030
     Dates: start: 20190429, end: 20190429

REACTIONS (8)
  - Pickwickian syndrome [None]
  - Dementia [None]
  - Electrocardiogram QT prolonged [None]
  - Cognitive disorder [None]
  - Acute respiratory failure [None]
  - Hypersomnia [None]
  - Respiratory failure [None]
  - Compulsive hoarding [None]

NARRATIVE: CASE EVENT DATE: 20190429
